FAERS Safety Report 4816583-3 (Version None)
Quarter: 2005Q4

REPORT INFORMATION
  Report Type: 
  Country: None (occurrence: None)
  Receive Date: 20051028
  Receipt Date: 20051019
  Transmission Date: 20060501
  Serious: Yes (Hospitalization)
  Sender: FDA-Public Use
  Company Number: M001094

PATIENT
  Age: 31 Year
  Sex: Male
  Weight: 72.5755 kg

DRUGS (3)
  1. ACETADOTE [Suspect]
     Indication: DRUG TOXICITY
     Dosage: 300 MG/KG IV
     Route: 042
     Dates: start: 20050925, end: 20051002
  2. ACETYLCYSTEINE [Suspect]
  3. ACTIVATED CHARCOAL [Concomitant]

REACTIONS (6)
  - ALANINE AMINOTRANSFERASE INCREASED [None]
  - ASPARTATE AMINOTRANSFERASE INCREASED [None]
  - CARBON DIOXIDE DECREASED [None]
  - HEPATIC FUNCTION ABNORMAL [None]
  - INTERNATIONAL NORMALISED RATIO INCREASED [None]
  - LIVER TRANSPLANT [None]
